FAERS Safety Report 13547361 (Version 1)
Quarter: 2017Q2

REPORT INFORMATION
  Report Type: Other
  Country: None (occurrence: ZA)
  Receive Date: 20170515
  Receipt Date: 20170515
  Transmission Date: 20170830
  Serious: Yes (Death, Life-Threatening, Other)
  Sender: FDA-Public Use
  Company Number: ZA-MLMSERVICE-20170508-0716179-1

PATIENT
  Age: 28 Year
  Sex: Male

DRUGS (2)
  1. OXYGEN 100% [Suspect]
     Active Substance: OXYGEN
     Indication: OXYGEN THERAPY
     Dates: start: 201611, end: 201611
  2. PARAQUAT [Suspect]
     Active Substance: PARAQUAT
     Dates: start: 201611, end: 201611

REACTIONS (15)
  - Alcohol poisoning [None]
  - Haemorrhage [None]
  - Pneumothorax [None]
  - Hepatic failure [None]
  - Ataxia [None]
  - Abdominal discomfort [None]
  - Oral disorder [None]
  - Renal failure [None]
  - Acute lung injury [Fatal]
  - Pharyngeal lesion [None]
  - Drug interaction [Fatal]
  - Dysarthria [None]
  - Respiratory failure [Fatal]
  - Condition aggravated [Fatal]
  - Vomiting [None]
